FAERS Safety Report 7747721-0 (Version None)
Quarter: 2011Q3

REPORT INFORMATION
  Report Type: 
  Country: None (occurrence: None)
  Receive Date: 20110913
  Receipt Date: 20110908
  Transmission Date: 20111222
  Serious: Yes (Death, Hospitalization, Other)
  Sender: FDA-Public Use
  Company Number: PHHY2011JP79790

PATIENT
  Age: 62 Year
  Sex: Female

DRUGS (5)
  1. PREDNISOLONE [Suspect]
     Dosage: 45 MG, QD
  2. PREDNISOLONE [Suspect]
     Dosage: 20 MG, QD
  3. METHYLPREDNISOLONE [Suspect]
     Dosage: 0.5 G, QD
  4. PREDNISOLONE [Suspect]
     Dosage: 30 MG, QD
     Route: 048
  5. PREDNISOLONE [Suspect]
     Dosage: 30 MG, UNK

REACTIONS (20)
  - DUODENAL ULCER [None]
  - RENAL DISORDER [None]
  - ACUTE ABDOMEN [None]
  - MALNUTRITION [None]
  - ACARODERMATITIS [None]
  - IMMUNOSUPPRESSION [None]
  - MELAENA [None]
  - ISCHAEMIC ULCER [None]
  - GLOMERULONEPHRITIS RAPIDLY PROGRESSIVE [None]
  - BRAIN ABSCESS [None]
  - STAPHYLOCOCCAL INFECTION [None]
  - OLIGURIA [None]
  - BACTEROIDES INFECTION [None]
  - ASPERGILLOSIS [None]
  - LUNG ABSCESS [None]
  - DEPRESSION [None]
  - CYTOMEGALOVIRUS INFECTION [None]
  - PNEUMOCYSTIS JIROVECI PNEUMONIA [None]
  - PSEUDOMONAS INFECTION [None]
  - CARDIAC VALVE ABSCESS [None]
